FAERS Safety Report 15477961 (Version 1)
Quarter: 2018Q4

REPORT INFORMATION
  Report Type: Spontaneous
  Country: US (occurrence: US)
  Receive Date: 20181002
  Receipt Date: 20181002
  Transmission Date: 20190205
  Serious: Yes (Hospitalization)
  Sender: FDA-Public Use
  Company Number: None

PATIENT
  Age: 54 Year
  Sex: Female
  Weight: 74.7 kg

DRUGS (4)
  1. CPAP MACHINE [Concomitant]
  2. SOLIQUA 100/33 [Suspect]
     Active Substance: INSULIN GLARGINE\LIXISENATIDE
     Indication: DIABETES MELLITUS
     Dosage: ?          OTHER STRENGTH:MCG;QUANTITY:1 INJECTION(S);?
     Route: 058
  3. JANUMET [Concomitant]
     Active Substance: METFORMIN HYDROCHLORIDE\SITAGLIPTIN PHOSPHATE
  4. CRESTOR [Concomitant]
     Active Substance: ROSUVASTATIN CALCIUM

REACTIONS (11)
  - Weight decreased [None]
  - Abdominal pain [None]
  - Nausea [None]
  - Hyperhidrosis [None]
  - Lipase increased [None]
  - Chills [None]
  - Pyrexia [None]
  - Abdominal pain upper [None]
  - Myalgia [None]
  - Economic problem [None]
  - Vomiting [None]

NARRATIVE: CASE EVENT DATE: 20180820
